FAERS Safety Report 8601067 (Version 3)
Quarter: 2012Q4

REPORT INFORMATION
  Report Type: 
  Country: US (occurrence: US)
  Receive Date: 20120606
  Receipt Date: 20121228
  Transmission Date: 20130627
  Serious: Yes (Death, Hospitalization, Congenital Anomaly, Other)
  Sender: FDA-Public Use
  Company Number: US-PFIZER INC-2012132550

PATIENT
  Sex: Male

DRUGS (13)
  1. ZOLOFT [Suspect]
     Indication: DEPRESSION
     Dosage: UNK
     Route: 064
     Dates: start: 20090925
  2. ZOLOFT [Suspect]
     Dosage: 75 mg, 1x/day
     Route: 064
     Dates: start: 20110510
  3. SERTRALINE HCL [Suspect]
     Dosage: UNK
     Route: 064
     Dates: start: 20090925
  4. SERTRALINE HCL [Suspect]
     Dosage: 50 mg, UNK
     Route: 064
     Dates: start: 20101104
  5. PRENATAL VITAMINS [Concomitant]
     Dosage: UNK
     Route: 064
  6. IRON [Concomitant]
     Dosage: UNK
     Route: 064
  7. LORAZEPAM [Concomitant]
     Dosage: UNK
     Route: 064
  8. DICLOXACILLIN [Concomitant]
     Dosage: UNK
     Route: 064
  9. DOCUSATE SODIUM [Concomitant]
     Dosage: UNK
     Route: 064
  10. IBUPROFEN [Concomitant]
     Dosage: UNK
     Route: 064
  11. PROPOXYPHENE NAPSYLATE [Concomitant]
     Dosage: UNK
     Route: 064
  12. VALACICLOVIR [Concomitant]
     Dosage: UNK
     Route: 064
  13. ALPRAZOLAM [Concomitant]
     Dosage: UNK
     Route: 064

REACTIONS (8)
  - Maternal exposure during pregnancy [Fatal]
  - Transposition of the great vessels [Fatal]
  - Ventricular septal defect [Unknown]
  - Congenital heart valve disorder [Unknown]
  - Aorta hypoplasia [Unknown]
  - Coarctation of the aorta [Unknown]
  - Ventricular hypertrophy [Unknown]
  - Atrioventricular septal defect [Unknown]
